FAERS Safety Report 21333322 (Version 1)
Quarter: 2022Q3

REPORT INFORMATION
  Report Type: Spontaneous
  Country: CN (occurrence: CN)
  Receive Date: 20220914
  Receipt Date: 20220914
  Transmission Date: 20221026
  Serious: Yes (Hospitalization)
  Sender: FDA-Public Use
  Company Number: CN-NOVARTISPH-NVSC2022CN205379

PATIENT
  Age: 60 Year
  Sex: Female

DRUGS (2)
  1. CERITINIB [Suspect]
     Active Substance: CERITINIB
     Indication: Lung adenocarcinoma stage IV
     Dosage: 450 MG, QD
     Route: 065
  2. CERITINIB [Suspect]
     Active Substance: CERITINIB
     Indication: Anaplastic lymphoma kinase gene mutation

REACTIONS (1)
  - Pulmonary granuloma [Recovering/Resolving]
